FAERS Safety Report 5881845-8 (Version None)
Quarter: 2008Q3

REPORT INFORMATION
  Report Type: 
  Country: None (occurrence: None)
  Receive Date: 20080912
  Receipt Date: 20080714
  Transmission Date: 20090109
  Serious: No
  Sender: FDA-Public Use
  Company Number: US-ABBOTT-08P-163-0462838-00

PATIENT
  Sex: Female

DRUGS (11)
  1. HUMIRA [Suspect]
     Indication: RHEUMATOID ARTHRITIS
     Route: 058
     Dates: start: 20080613, end: 20080703
  2. METHOTREXATE [Concomitant]
     Indication: RHEUMATOID ARTHRITIS
     Dosage: EIGHT PILLS IN ONE WEEK
     Route: 048
     Dates: start: 20080301, end: 20080705
  3. VENLAFAXINE HCL [Concomitant]
     Indication: ANTIDEPRESSANT THERAPY
     Route: 048
  4. AMLODIPINE [Concomitant]
     Indication: BLOOD PRESSURE
     Route: 048
  5. FOLIC ACID [Concomitant]
     Indication: VITAMIN SUPPLEMENTATION
     Route: 048
     Dates: start: 20080301
  6. SINEMET [Concomitant]
     Indication: RESTLESS LEGS SYNDROME
     Dosage: 25/100MG AT NIGHT
     Route: 048
     Dates: start: 20060101
  7. PREDNISONE TAB [Concomitant]
     Indication: BRONCHITIS
     Route: 048
     Dates: start: 20080708
  8. CYANOCOBALAMIN-TANNIN COMPLEX [Concomitant]
     Indication: VITAMIN B12
     Route: 048
     Dates: start: 20080601
  9. ZINC [Concomitant]
     Indication: MINERAL SUPPLEMENTATION
     Route: 048
     Dates: start: 20080601
  10. POTASSIUM CHLORIDE [Concomitant]
     Indication: HYPERTENSION
     Route: 048
     Dates: start: 20080301
  11. RANITIDINE [Concomitant]
     Indication: DRUG USE FOR UNKNOWN INDICATION
     Route: 048

REACTIONS (4)
  - BRONCHITIS [None]
  - COUGH [None]
  - DYSPNOEA [None]
  - SINUSITIS [None]
